FAERS Safety Report 6348700-0 (Version None)
Quarter: 2009Q3

REPORT INFORMATION
  Report Type: 
  Country: None (occurrence: None)
  Receive Date: 20090911
  Receipt Date: 20070619
  Transmission Date: 20100115
  Serious: Yes (Other)
  Sender: FDA-Public Use
  Company Number: US-ASTRAZENECA-2006UW27775

PATIENT
  Sex: Female
  Weight: 98.4 kg

DRUGS (22)
  1. SEROQUEL [Suspect]
     Indication: BIPOLAR DISORDER
     Dosage: 25 MG TO 100 MG,1 TAB QHS,1 OR 2 TAB HS
     Route: 048
     Dates: start: 20031024
  2. ZYPREXA [Concomitant]
     Dates: start: 20010731, end: 20020215
  3. SKELAXIN [Concomitant]
     Indication: MUSCLE SPASMS
     Dosage: 800 MG,EVERY 6 HOURS AS NEEDED
     Route: 048
     Dates: start: 20061121
  4. TRAMADOL HCL [Concomitant]
     Indication: PAIN
     Dosage: 50 MG,TWO TABLETS EVERY FOUR HOURS
     Route: 048
     Dates: start: 20040625
  5. METFORMIN HCL [Concomitant]
     Indication: DIABETES MELLITUS
     Route: 048
     Dates: start: 20050214
  6. GLYBURIDE [Concomitant]
     Route: 048
     Dates: start: 20050622
  7. LISINOPRIL [Concomitant]
     Route: 048
     Dates: start: 20050830
  8. AMBIEN [Concomitant]
     Indication: SLEEP DISORDER
     Route: 048
     Dates: start: 20050124
  9. ALPRAZOLAM [Concomitant]
     Dosage: 0.25-0.50 MG,QD,Q 6 H PRN
     Route: 048
     Dates: start: 20030819
  10. LUNESTA [Concomitant]
     Indication: SLEEP DISORDER
     Route: 048
     Dates: start: 20051229
  11. METRONIDAZOLE [Concomitant]
     Dosage: 500 MG,TAKE FOUR TABLETS  AS ONE DOSE
     Route: 048
     Dates: start: 20050214
  12. FLUCONAZOLE [Concomitant]
     Dosage: 150 MG, TAKE ONE TABLET
     Route: 048
     Dates: start: 20050124
  13. HYDROCODONE BITARTRATE + ACETAMINOPHEN [Concomitant]
     Dosage: 7.5-500 MG,TAKE 1 OR 2 TABLETS Q 4 H PRN
     Route: 048
     Dates: start: 20050830
  14. NAPROXEN [Concomitant]
     Route: 048
     Dates: start: 20040226
  15. DEPAKOTE ER [Concomitant]
     Route: 048
     Dates: start: 20031024
  16. WELLBUTRIN SR [Concomitant]
     Dosage: 150-200 MG,QAM
     Route: 048
     Dates: start: 20031024
  17. ALLEGRA D 24 HOUR [Concomitant]
     Dosage: 1 TABLET BID
     Route: 048
     Dates: start: 20030819
  18. ZYRTEC [Concomitant]
     Route: 048
     Dates: start: 20031107
  19. AVANDAMET [Concomitant]
     Dosage: 1-500 MG,2-500 MG,BID
     Route: 048
     Dates: start: 20031107
  20. PREVACID [Concomitant]
     Route: 048
     Dates: start: 20040226
  21. CLARITIN-D [Concomitant]
     Indication: SINUSITIS
     Dates: start: 20030105
  22. LORAZEPAM [Concomitant]
     Dosage: 0.5 MG,EVERY 4 HOURS
     Dates: start: 20030109

REACTIONS (5)
  - DIABETES MELLITUS [None]
  - GALLBLADDER OPERATION [None]
  - KETOACIDOSIS [None]
  - OBESITY [None]
  - PANCREATITIS [None]
